FAERS Safety Report 5034201-9 (Version None)
Quarter: 2006Q2

REPORT INFORMATION
  Report Type: 
  Country: None (occurrence: None)
  Receive Date: 20060626
  Receipt Date: 20060418
  Transmission Date: 20061013
  Serious: Yes (Other)
  Sender: FDA-Public Use
  Company Number: GB-GLAXOSMITHKLINE-B0420552A

PATIENT
  Age: 42 Year
  Sex: Male
  Weight: 97 kg

DRUGS (3)
  1. SEREVENT [Suspect]
     Indication: ASTHMA
     Dosage: 50MCG TWICE PER DAY
     Route: 055
     Dates: start: 20060101, end: 20060101
  2. SALBUTAMOL [Concomitant]
     Indication: ASTHMA
     Dosage: 100MCG AS REQUIRED
     Route: 055
  3. BECLOMETHASONE DIPROPIONATE [Concomitant]
     Indication: ASTHMA
     Dosage: 100MCG TWICE PER DAY
     Route: 055

REACTIONS (6)
  - ASTHMA [None]
  - CHEST DISCOMFORT [None]
  - DRUG DEPENDENCE [None]
  - DRY MOUTH [None]
  - MIDDLE INSOMNIA [None]
  - SNORING [None]
